FAERS Safety Report 4697796-0 (Version None)
Quarter: 2005Q2

REPORT INFORMATION
  Report Type: 
  Country: None (occurrence: None)
  Receive Date: 20050119
  Receipt Date: 20050119
  Transmission Date: 20051028
  Serious: Yes (Other)
  Sender: FDA-Public Use
  Company Number: None

PATIENT
  Age: 36 Year
  Sex: Female
  Weight: 97.5234 kg

DRUGS (1)
  1. WARFARIN [Suspect]
     Indication: PULMONARY HYPERTENSION
     Dosage: VARYING

REACTIONS (2)
  - INTERNATIONAL NORMALISED RATIO ABNORMAL [None]
  - PHARMACEUTICAL PRODUCT COMPLAINT [None]
